FAERS Safety Report 23382428 (Version 1)
Quarter: 2024Q1

REPORT INFORMATION
  Report Type: Spontaneous
  Country: US (occurrence: None)
  Receive Date: 20240108
  Receipt Date: 20240108
  Transmission Date: 20240410
  Serious: Yes (Death)
  Sender: FDA-Public Use
  Company Number: None

PATIENT
  Age: 63 Year
  Sex: Male
  Weight: 48.08 kg

DRUGS (11)
  1. MYCOPHENOLIC ACID [Suspect]
     Active Substance: MYCOPHENOLIC ACID
     Indication: Renal transplant
     Dosage: FREQUENCY : TWICE A DAY;?
     Route: 048
     Dates: start: 20020120, end: 20230107
  2. TACROLIMUS [Suspect]
     Active Substance: TACROLIMUS
     Indication: Renal transplant
     Dosage: FREQUENCY : TWICE A DAY;?
     Route: 048
     Dates: end: 20230107
  3. CARBIDOPA [Concomitant]
     Active Substance: CARBIDOPA
  4. WARFARIN [Concomitant]
     Active Substance: WARFARIN
  5. CLONIDINE [Concomitant]
     Active Substance: CLONIDINE
  6. FENOFIBRATE [Concomitant]
     Active Substance: FENOFIBRATE
  7. FUROSEMIDE [Concomitant]
     Active Substance: FUROSEMIDE
  8. METOPROLOL SUCCINATE [Concomitant]
     Active Substance: METOPROLOL SUCCINATE
  9. POTASSIUM CHLORIDE [Concomitant]
     Active Substance: POTASSIUM CHLORIDE
  10. PREDNISONE [Concomitant]
     Active Substance: PREDNISONE
  11. VICTOZA [Concomitant]
     Active Substance: LIRAGLUTIDE

REACTIONS (1)
  - Cardiac disorder [None]

NARRATIVE: CASE EVENT DATE: 20240107
